FAERS Safety Report 20494818 (Version 2)
Quarter: 2022Q1

REPORT INFORMATION
  Report Type: Spontaneous
  Country: ES (occurrence: ES)
  Receive Date: 20220221
  Receipt Date: 20220225
  Transmission Date: 20220423
  Serious: Yes (Other)
  Sender: FDA-Public Use
  Company Number: ES-GILEAD-2022-0565780

PATIENT
  Age: 18 Year
  Sex: Male

DRUGS (4)
  1. AMPHOTERICIN B [Suspect]
     Active Substance: AMPHOTERICIN B
     Indication: Product used for unknown indication
     Route: 065
  2. MEROPENEM [Concomitant]
     Active Substance: MEROPENEM
     Indication: Product used for unknown indication
     Dosage: UNK UNK, UNKNOWN FREQ.
     Route: 065
  3. VANCOMYCIN [Concomitant]
     Active Substance: VANCOMYCIN
     Indication: Product used for unknown indication
     Dosage: UNK UNK, UNKNOWN FREQ.
     Route: 065
  4. COTRIMOXAZOLE [Concomitant]
     Active Substance: SULFAMETHOXAZOLE\TRIMETHOPRIM
     Indication: Product used for unknown indication
     Dosage: UNK UNK, UNKNOWN FREQ.
     Route: 065

REACTIONS (14)
  - Blindness [Recovered/Resolved]
  - Endophthalmitis [Recovered/Resolved]
  - Acute respiratory failure [Recovered/Resolved]
  - Necrotising retinitis [Recovered/Resolved]
  - Empyema [Recovered/Resolved]
  - Central nervous system lesion [Recovered/Resolved]
  - Atrophy of globe [Recovered/Resolved]
  - CNS ventriculitis [Recovered/Resolved]
  - Cerebral aspergillosis [Recovered/Resolved]
  - Induration [Unknown]
  - Oropharyngeal discomfort [Unknown]
  - Abscess [Unknown]
  - Pyrexia [Unknown]
  - Hypotonia [Recovered/Resolved]
